FAERS Safety Report 7302796-8 (Version None)
Quarter: 2011Q1

REPORT INFORMATION
  Report Type: 
  Country: None (occurrence: None)
  Receive Date: 20110218
  Receipt Date: 20101207
  Transmission Date: 20110831
  Serious: No
  Sender: FDA-Public Use
  Company Number: US-BAYER-2010-009257

PATIENT
  Sex: Female
  Weight: 68 kg

DRUGS (4)
  1. ZOCOR [Concomitant]
  2. FENOFIBRATE [Concomitant]
  3. ALEVE (CAPLET) [Suspect]
     Indication: ARTHRITIS
  4. COZAAR [Concomitant]

REACTIONS (1)
  - DRUG EFFECT DECREASED [None]
